FAERS Safety Report 7392343-7 (Version None)
Quarter: 2011Q1

REPORT INFORMATION
  Report Type: 
  Country: None (occurrence: None)
  Receive Date: 20110330
  Receipt Date: 20110330
  Transmission Date: 20110831
  Serious: No
  Sender: FDA-Public Use
  Company Number: None

PATIENT
  Age: 55 Year
  Sex: Female

DRUGS (1)
  1. MINOCYCLINE [Suspect]
     Dates: start: 20070807, end: 20090318

REACTIONS (2)
  - ERYTHEMA NODOSUM [None]
  - HEPATITIS CHOLESTATIC [None]
